FAERS Safety Report 21231353 (Version 1)
Quarter: 2022Q3

REPORT INFORMATION
  Report Type: Other
  Country: PT (occurrence: PT)
  Receive Date: 20220819
  Receipt Date: 20220819
  Transmission Date: 20221026
  Serious: Yes (Other)
  Sender: FDA-Public Use
  Company Number: PT-CELLTRION INC.-2022PT013077

PATIENT

DRUGS (2)
  1. HERZUMA [Suspect]
     Active Substance: TRASTUZUMAB-PKRB
     Indication: Breast cancer
     Dosage: 20 MILLIGRAM, 1 CYCLICAL
     Route: 065
     Dates: start: 20220803
  2. HERZUMA [Suspect]
     Active Substance: TRASTUZUMAB-PKRB
     Indication: Breast cancer
     Dosage: 440MG, 1 TOTAL
     Route: 065
     Dates: start: 20220803

REACTIONS (2)
  - Paraesthesia oral [Recovered/Resolved]
  - Off label use [Unknown]

NARRATIVE: CASE EVENT DATE: 20220803
